FAERS Safety Report 11934825 (Version 3)
Quarter: 2016Q1

REPORT INFORMATION
  Report Type: Spontaneous
  Country: RU (occurrence: RU)
  Receive Date: 20160121
  Receipt Date: 20160303
  Transmission Date: 20160526
  Serious: Yes (Other)
  Sender: FDA-Public Use
  Company Number: RU-SYMPLMED PHARMACEUTICALS-2016SYMPLMED000117

PATIENT

DRUGS (7)
  1. PHENAZEPAM [Concomitant]
     Active Substance: PHENAZEPAM
     Indication: DEPRESSION
     Dosage: 1-2 MG OCCASIONALLY
     Dates: start: 2015
  2. MEXIDOL [Concomitant]
     Indication: ENCEPHALOPATHY
     Dosage: PER OS
     Dates: start: 201511, end: 20151210
  3. PRESTARIUM A [Suspect]
     Active Substance: PERINDOPRIL ARGININE
     Indication: HYPERTENSION
     Dosage: 5 MG, QD
     Route: 048
     Dates: start: 201511, end: 20151210
  4. PRESTARIUM A [Suspect]
     Active Substance: PERINDOPRIL ARGININE
     Dosage: 5 MG, QD
     Route: 048
     Dates: start: 20151211, end: 20151223
  5. VINPOCETINE [Concomitant]
     Active Substance: VINPOCETINE
     Indication: ENCEPHALOPATHY
     Dosage: UNK
     Route: 042
     Dates: start: 201511, end: 20151210
  6. PRESTARIUM A [Suspect]
     Active Substance: PERINDOPRIL ARGININE
     Dosage: 15 MG, QD
     Route: 048
     Dates: start: 20151224, end: 20151224
  7. AMITRIPTYLINE HYDROCHLORIDE. [Concomitant]
     Active Substance: AMITRIPTYLINE HYDROCHLORIDE
     Indication: DEPRESSION
     Dosage: 12.5 MG, BID
     Dates: start: 201511, end: 20151210

REACTIONS (4)
  - Suspected counterfeit product [Recovered/Resolved]
  - Drug ineffective [Recovered/Resolved]
  - Product quality issue [Recovered/Resolved]
  - Overdose [Recovered/Resolved]

NARRATIVE: CASE EVENT DATE: 201512
